FAERS Safety Report 15982070 (Version 8)
Quarter: 2019Q4

REPORT INFORMATION
  Report Type: Report from Study
  Country: US (occurrence: US)
  Receive Date: 20190219
  Receipt Date: 20191213
  Transmission Date: 20200122
  Serious: Yes (Other)
  Sender: FDA-Public Use
  Company Number: PHEH2019US007380

PATIENT
  Sex: Female

DRUGS (2)
  1. COSENTYX [Suspect]
     Active Substance: SECUKINUMAB
     Dosage: 300 MG, QMO
     Route: 058
  2. COSENTYX [Suspect]
     Active Substance: SECUKINUMAB
     Indication: PSORIATIC ARTHROPATHY
     Dosage: 150 MG, QMO (Q4W)
     Route: 058
     Dates: start: 20190428

REACTIONS (12)
  - Blood glucose decreased [Unknown]
  - Feeling abnormal [Unknown]
  - Sinusitis [Unknown]
  - Bronchitis [Unknown]
  - Upper respiratory tract infection [Unknown]
  - Neck pain [Unknown]
  - Therapeutic response shortened [Unknown]
  - Arthralgia [Unknown]
  - C-reactive protein increased [Unknown]
  - Nasopharyngitis [Unknown]
  - Psoriatic arthropathy [Unknown]
  - Intervertebral disc protrusion [Unknown]
